FAERS Safety Report 22168085 (Version 1)
Quarter: 2023Q2

REPORT INFORMATION
  Report Type: Spontaneous
  Country: US (occurrence: None)
  Receive Date: 20230402
  Receipt Date: 20230402
  Transmission Date: 20230722
  Serious: Yes (Hospitalization)
  Sender: FDA-Public Use
  Company Number: None

PATIENT
  Sex: Male

DRUGS (20)
  1. VYNDAMAX [Suspect]
     Active Substance: TAFAMIDIS
     Indication: Amyloidosis
     Dosage: FREQUENCY : DAILY;?
     Route: 048
     Dates: start: 20220510
  2. VYNDAMAX [Suspect]
     Active Substance: TAFAMIDIS
     Dosage: FREQUENCY : DAILY;?
     Route: 048
  3. AMLODIPINE [Concomitant]
     Active Substance: AMLODIPINE BESYLATE
  4. ASPIRIN LOW [Concomitant]
  5. ATORVASTATIN [Concomitant]
     Active Substance: ATORVASTATIN
  6. BUMETANIDE [Concomitant]
     Active Substance: BUMETANIDE
  7. CLONIDINE [Concomitant]
  8. ELIQUIS [Concomitant]
     Active Substance: APIXABAN
  9. ENTRESTO [Concomitant]
  10. FARXIGA [Concomitant]
     Active Substance: DAPAGLIFLOZIN PROPANEDIOL
  11. FUROSEMIDE [Concomitant]
     Active Substance: FUROSEMIDE
  12. GLYBURIDE [Concomitant]
     Active Substance: GLYBURIDE
  13. JANUVIA [Concomitant]
     Active Substance: SITAGLIPTIN PHOSPHATE
  14. KLOR-CON [Concomitant]
  15. MAGNESIUM OXIDE [Concomitant]
     Active Substance: MAGNESIUM OXIDE
  16. METFORMIN [Concomitant]
  17. METOPROLOL SUC [Concomitant]
  18. MONTELUKAST [Concomitant]
     Active Substance: MONTELUKAST SODIUM
  19. SPIRONOLACTONE [Concomitant]
     Active Substance: SPIRONOLACTONE
  20. SUCRALFATE [Concomitant]
     Active Substance: SUCRALFATE

REACTIONS (2)
  - Therapy interrupted [None]
  - Cardiac ablation [None]
